FAERS Safety Report 21124252 (Version 2)
Quarter: 2022Q3

REPORT INFORMATION
  Report Type: Report from Study
  Country: US (occurrence: US)
  Receive Date: 20220725
  Receipt Date: 20220824
  Transmission Date: 20221027
  Serious: Yes (Other)
  Sender: FDA-Public Use
  Company Number: US-JNJFOC-20220741120

PATIENT
  Age: 3 Decade
  Sex: Female
  Weight: 79.904 kg

DRUGS (1)
  1. INFLIXIMAB [Suspect]
     Active Substance: INFLIXIMAB
     Indication: Inflammatory bowel disease
     Dosage: LAST DATE OF ADMINISTRATION PRIOR TO THE EVENT ON 03-DEC-2020).
     Route: 041
     Dates: start: 20120126

REACTIONS (1)
  - Sinus tachycardia [Recovered/Resolved with Sequelae]

NARRATIVE: CASE EVENT DATE: 20210101
